FAERS Safety Report 7518253-X (Version None)
Quarter: 2011Q2

REPORT INFORMATION
  Report Type: 
  Country: None (occurrence: None)
  Receive Date: 20110601
  Receipt Date: 20110601
  Transmission Date: 20111010
  Serious: Yes (Life-Threatening, Hospitalization)
  Sender: FDA-Public Use
  Company Number: None

PATIENT
  Sex: Female
  Weight: 72.5755 kg

DRUGS (5)
  1. VALTREX [Concomitant]
  2. HERBAL BOSWELLIA [Concomitant]
  3. AMLODIPINE BESYLATE AND BENAZEPRIL HCL [Suspect]
     Indication: HYPERTENSION
     Dosage: 5-20 MG. 1 PER DAY ORAL EST. 6-8 YRS. EST.
     Route: 048
  4. IBUPROFEN [Suspect]
     Indication: BACK PAIN
     Dosage: 200 MG 4 PER DAY ORAL
     Route: 048
  5. IBUPROFEN [Suspect]
     Indication: ARTHRALGIA
     Dosage: 200 MG 4 PER DAY ORAL
     Route: 048

REACTIONS (8)
  - DYSPHAGIA [None]
  - RENAL FAILURE ACUTE [None]
  - FLANK PAIN [None]
  - SWOLLEN TONGUE [None]
  - PHARYNGEAL OEDEMA [None]
  - APHASIA [None]
  - ABDOMINAL PAIN [None]
  - VOMITING [None]
